FAERS Safety Report 6163267-8 (Version None)
Quarter: 2009Q2

REPORT INFORMATION
  Report Type: 
  Country: None (occurrence: None)
  Receive Date: 20090420
  Receipt Date: 20090420
  Transmission Date: 20091009
  Serious: No
  Sender: FDA-Public Use
  Company Number: None

PATIENT
  Age: 71 Year
  Sex: Male
  Weight: 108.5 kg

DRUGS (1)
  1. MOXIFLOXACIN HCL [Suspect]
     Indication: INFECTION
     Dosage: 400 MG EVERY DAY PO
     Route: 048
     Dates: start: 20081226, end: 20090102

REACTIONS (1)
  - CLOSTRIDIUM DIFFICILE COLITIS [None]
